FAERS Safety Report 16677342 (Version 1)
Quarter: 2019Q3

REPORT INFORMATION
  Report Type: Spontaneous
  Country: CA (occurrence: CA)
  Receive Date: 20190807
  Receipt Date: 20190807
  Transmission Date: 20191004
  Serious: Yes (Other)
  Sender: FDA-Public Use
  Company Number: CA-PFIZER INC-2019334989

PATIENT
  Age: 39 Year
  Sex: Female
  Weight: 145 kg

DRUGS (1)
  1. METHOTREXATE SODIUM. [Suspect]
     Active Substance: METHOTREXATE SODIUM
     Dosage: 25 MG, WEEKLY
     Route: 058

REACTIONS (5)
  - Product use issue [Unknown]
  - Drug ineffective [Unknown]
  - Rheumatoid vasculitis [Unknown]
  - Off label use [Unknown]
  - Skin ulcer [Unknown]
